FAERS Safety Report 19969718 (Version 1)
Quarter: 2021Q4

REPORT INFORMATION
  Report Type: Report from Study
  Country: US (occurrence: US)
  Receive Date: 20211019
  Receipt Date: 20211019
  Transmission Date: 20220303
  Serious: Yes (Other)
  Sender: FDA-Public Use
  Company Number: US-PFIZER INC-202101326415

PATIENT

DRUGS (2)
  1. FUROSEMIDE [Suspect]
     Active Substance: FUROSEMIDE
     Dosage: 20 MG
  2. FUROSEMIDE [Suspect]
     Active Substance: FUROSEMIDE
     Dosage: 160 MG

REACTIONS (1)
  - Renal impairment [Unknown]
